FAERS Safety Report 17696626 (Version 1)
Quarter: 2020Q2

REPORT INFORMATION
  Report Type: Spontaneous
  Country: US (occurrence: US)
  Receive Date: 20200423
  Receipt Date: 20200423
  Transmission Date: 20200714
  Serious: No
  Sender: FDA-Public Use
  Company Number: US-PURDUE-USA-2020-0149928

PATIENT
  Sex: Female

DRUGS (1)
  1. OXYCODONE HCL TABLETS (91-490) [Suspect]
     Active Substance: OXYCODONE HYDROCHLORIDE
     Indication: PAIN
     Dosage: 30 MG, QID
     Route: 048

REACTIONS (8)
  - Product formulation issue [Unknown]
  - Unevaluable event [Unknown]
  - Pain [Unknown]
  - Intentional product use issue [Unknown]
  - Nausea [Unknown]
  - Loss of personal independence in daily activities [Unknown]
  - Headache [Unknown]
  - Drug ineffective [Unknown]
